FAERS Safety Report 14949444 (Version 1)
Quarter: 2018Q2

REPORT INFORMATION
  Report Type: Spontaneous
  Country: None (occurrence: US)
  Receive Date: 20180529
  Receipt Date: 20180529
  Transmission Date: 20180711
  Serious: No
  Sender: FDA-Public Use
  Company Number: US-BIODELIVERY SCIENCES INTERNATIONAL-2016BDSI0041

PATIENT

DRUGS (2)
  1. BUPRENORPHINE. [Suspect]
     Active Substance: BUPRENORPHINE
     Indication: PAIN
     Dosage: UNKNOWN, UNKNOWN
  2. BUPRENORPHINE/NALOXONE [Suspect]
     Active Substance: BUPRENORPHINE\NALOXONE
     Indication: PAIN
     Dosage: UNKNOWN, UNKNOWN

REACTIONS (2)
  - Off label use [Unknown]
  - Oedema [Unknown]
